FAERS Safety Report 14747461 (Version 3)
Quarter: 2018Q2

REPORT INFORMATION
  Report Type: Spontaneous
  Country: PT (occurrence: PT)
  Receive Date: 20180411
  Receipt Date: 20180510
  Transmission Date: 20180711
  Serious: Yes (Hospitalization, Other)
  Sender: FDA-Public Use
  Company Number: PT-PFIZER INC-2018145245

PATIENT
  Age: 73 Year
  Sex: Female

DRUGS (6)
  1. XANAX [Suspect]
     Active Substance: ALPRAZOLAM
     Dosage: 0.25 MG, ALTERNATE DAY (AT NIGHT)
     Route: 048
     Dates: start: 201803
  2. OMEPRAZOL TEVA [Concomitant]
     Active Substance: OMEPRAZOLE
     Indication: GASTRITIS
     Dosage: 20 MG, 1X/DAY (FASTING)
     Route: 048
  3. OMEPRAZOL TEVA [Concomitant]
     Active Substance: OMEPRAZOLE
     Indication: GASTROOESOPHAGEAL REFLUX DISEASE
  4. MAGNESONA [Concomitant]
     Dosage: 1 DF, 1X/DAY (AT LUNCH)
  5. XANAX [Suspect]
     Active Substance: ALPRAZOLAM
     Indication: INSOMNIA
     Dosage: 1 MG, 1X/DAY (AT NIGHT)
     Route: 048
     Dates: start: 201712, end: 201803
  6. XANAX [Suspect]
     Active Substance: ALPRAZOLAM
     Dosage: 0.5 MG, ALTERNATE DAY (AT NIGHT)
     Route: 048
     Dates: start: 201803

REACTIONS (4)
  - Epilepsy [Recovered/Resolved]
  - Drug effect decreased [Recovering/Resolving]
  - Panic attack [Recovered/Resolved]
  - Drug effect delayed [Recovering/Resolving]

NARRATIVE: CASE EVENT DATE: 201712
